FAERS Safety Report 15048776 (Version 2)
Quarter: 2018Q2

REPORT INFORMATION
  Report Type: Spontaneous
  Country: US (occurrence: US)
  Receive Date: 20180622
  Receipt Date: 20180625
  Transmission Date: 20180711
  Serious: No
  Sender: FDA-Public Use
  Company Number: US-PFIZER INC-2018247521

PATIENT
  Age: 72 Year
  Sex: Male
  Weight: 81.63 kg

DRUGS (3)
  1. ISOSORBIDE. [Concomitant]
     Active Substance: ISOSORBIDE
     Indication: BLOOD CHOLESTEROL ABNORMAL
     Dosage: 60 MG, 1X/DAY
     Route: 048
  2. LISINOPRIL. [Concomitant]
     Active Substance: LISINOPRIL
     Indication: BLOOD PRESSURE ABNORMAL
     Dosage: 10 MG, 1X/DAY
     Route: 048
  3. XELJANZ XR [Suspect]
     Active Substance: TOFACITINIB CITRATE
     Dosage: 11 MG, 1X/DAY
     Route: 048
     Dates: start: 2018

REACTIONS (8)
  - Diarrhoea [Not Recovered/Not Resolved]
  - Eating disorder [Not Recovered/Not Resolved]
  - Nausea [Recovering/Resolving]
  - Hyperhidrosis [Recovering/Resolving]
  - Tongue disorder [Unknown]
  - Pain [Recovering/Resolving]
  - Pyrexia [Unknown]
  - Stomatitis [Not Recovered/Not Resolved]

NARRATIVE: CASE EVENT DATE: 20180611
